FAERS Safety Report 25588009 (Version 1)
Quarter: 2025Q3

REPORT INFORMATION
  Report Type: Spontaneous
  Country: CN (occurrence: CN)
  Receive Date: 20250721
  Receipt Date: 20250721
  Transmission Date: 20251020
  Serious: Yes (Other)
  Sender: ABBVIE
  Company Number: CN-ABBVIE-6378082

PATIENT
  Age: 44 Year
  Sex: Female
  Weight: 49 kg

DRUGS (3)
  1. VENCLEXTA [Suspect]
     Active Substance: VENETOCLAX
     Indication: Leukocytosis
     Dosage: 200 MILLIGRAM
     Route: 048
     Dates: start: 20250709, end: 20250709
  2. VENCLEXTA [Suspect]
     Active Substance: VENETOCLAX
     Indication: Leukocytosis
     Dosage: 300 MILLIGRAM
     Route: 048
     Dates: start: 20250710, end: 20250712
  3. VENCLEXTA [Suspect]
     Active Substance: VENETOCLAX
     Indication: Leukocytosis
     Dosage: 100 MILLIGRAM
     Route: 048
     Dates: start: 20250708, end: 20250708

REACTIONS (1)
  - Myelosuppression [Not Recovered/Not Resolved]

NARRATIVE: CASE EVENT DATE: 20250713
